FAERS Safety Report 26149987 (Version 1)
Quarter: 2025Q4

REPORT INFORMATION
  Report Type: Spontaneous
  Country: UA (occurrence: UA)
  Receive Date: 20251212
  Receipt Date: 20251212
  Transmission Date: 20260118
  Serious: Yes (Death)
  Sender: MYLAN
  Company Number: UA-MYLANLABS-2025M1106426

PATIENT
  Age: 57 Year
  Sex: Male

DRUGS (16)
  1. PRETOMANID [Suspect]
     Active Substance: PRETOMANID
     Indication: Tuberculosis
     Dosage: 200 MILLIGRAM, QD
     Dates: start: 20250912, end: 20251107
  2. PRETOMANID [Suspect]
     Active Substance: PRETOMANID
     Dosage: 200 MILLIGRAM, QD
     Route: 048
     Dates: start: 20250912, end: 20251107
  3. PRETOMANID [Suspect]
     Active Substance: PRETOMANID
     Dosage: 200 MILLIGRAM, QD
     Route: 048
     Dates: start: 20250912, end: 20251107
  4. PRETOMANID [Suspect]
     Active Substance: PRETOMANID
     Dosage: 200 MILLIGRAM, QD
     Dates: start: 20250912, end: 20251107
  5. LINEZOLID [Suspect]
     Active Substance: LINEZOLID
     Indication: Tuberculosis
     Dosage: 600 MILLIGRAM, QD (1 FILM-COATED TABLET CONTAINS 600 MG OF LINEZOLID)
     Dates: start: 20250912, end: 20251107
  6. LINEZOLID [Suspect]
     Active Substance: LINEZOLID
     Dosage: 600 MILLIGRAM, QD (1 FILM-COATED TABLET CONTAINS 600 MG OF LINEZOLID)
     Route: 048
     Dates: start: 20250912, end: 20251107
  7. LINEZOLID [Suspect]
     Active Substance: LINEZOLID
     Dosage: 600 MILLIGRAM, QD (1 FILM-COATED TABLET CONTAINS 600 MG OF LINEZOLID)
     Route: 048
     Dates: start: 20250912, end: 20251107
  8. LINEZOLID [Suspect]
     Active Substance: LINEZOLID
     Dosage: 600 MILLIGRAM, QD (1 FILM-COATED TABLET CONTAINS 600 MG OF LINEZOLID)
     Dates: start: 20250912, end: 20251107
  9. MOXIFLOXACIN [Suspect]
     Active Substance: MOXIFLOXACIN
     Indication: Tuberculosis
     Dosage: 400 MILLIGRAM, QD (1 TABLET CONTAINS 400 MG IN THE FORM OF MOXIFLOXACIN HYDROCHLORIDE)
     Dates: start: 20250912, end: 20251107
  10. MOXIFLOXACIN [Suspect]
     Active Substance: MOXIFLOXACIN
     Dosage: 400 MILLIGRAM, QD (1 TABLET CONTAINS 400 MG IN THE FORM OF MOXIFLOXACIN HYDROCHLORIDE)
     Route: 048
     Dates: start: 20250912, end: 20251107
  11. MOXIFLOXACIN [Suspect]
     Active Substance: MOXIFLOXACIN
     Dosage: 400 MILLIGRAM, QD (1 TABLET CONTAINS 400 MG IN THE FORM OF MOXIFLOXACIN HYDROCHLORIDE)
     Route: 048
     Dates: start: 20250912, end: 20251107
  12. MOXIFLOXACIN [Suspect]
     Active Substance: MOXIFLOXACIN
     Dosage: 400 MILLIGRAM, QD (1 TABLET CONTAINS 400 MG IN THE FORM OF MOXIFLOXACIN HYDROCHLORIDE)
     Dates: start: 20250912, end: 20251107
  13. BEDAQUILINE [Suspect]
     Active Substance: BEDAQUILINE
     Indication: Tuberculosis
     Dosage: 200 MILLIGRAM, 3XW (1 TABLET CONTAINS 120.89 MG OF BEDAQUILINE FUMARATE EQUIVALENT TO 100 MG)
     Dates: start: 20250912, end: 20251107
  14. BEDAQUILINE [Suspect]
     Active Substance: BEDAQUILINE
     Dosage: 200 MILLIGRAM, 3XW (1 TABLET CONTAINS 120.89 MG OF BEDAQUILINE FUMARATE EQUIVALENT TO 100 MG)
     Route: 048
     Dates: start: 20250912, end: 20251107
  15. BEDAQUILINE [Suspect]
     Active Substance: BEDAQUILINE
     Dosage: 200 MILLIGRAM, 3XW (1 TABLET CONTAINS 120.89 MG OF BEDAQUILINE FUMARATE EQUIVALENT TO 100 MG)
     Route: 048
     Dates: start: 20250912, end: 20251107
  16. BEDAQUILINE [Suspect]
     Active Substance: BEDAQUILINE
     Dosage: 200 MILLIGRAM, 3XW (1 TABLET CONTAINS 120.89 MG OF BEDAQUILINE FUMARATE EQUIVALENT TO 100 MG)
     Dates: start: 20250912, end: 20251107

REACTIONS (1)
  - Death [Fatal]

NARRATIVE: CASE EVENT DATE: 20251109
